FAERS Safety Report 16353641 (Version 1)
Quarter: 2019Q2

REPORT INFORMATION
  Report Type: Spontaneous
  Country: US (occurrence: US)
  Receive Date: 20190524
  Receipt Date: 20190524
  Transmission Date: 20190711
  Serious: Yes (Death, Other)
  Sender: FDA-Public Use
  Company Number: US-ABBVIE-19K-163-2795004-00

PATIENT
  Age: 58 Year
  Sex: Male
  Weight: 83.7 kg

DRUGS (5)
  1. LEVOFLOXACIN. [Concomitant]
     Active Substance: LEVOFLOXACIN
     Indication: PYREXIA
     Route: 048
     Dates: start: 20190323
  2. ALLOPURINOL. [Concomitant]
     Active Substance: ALLOPURINOL
     Indication: BLOOD URIC ACID
     Route: 046
     Dates: start: 20190319
  3. HYDREA [Concomitant]
     Active Substance: HYDROXYUREA
     Indication: CYTOREDUCTIVE SURGERY
     Route: 048
     Dates: start: 20190319
  4. VENCLEXTA [Suspect]
     Active Substance: VENETOCLAX
     Indication: ACUTE MYELOID LEUKAEMIA
     Route: 048
     Dates: start: 20190325, end: 20190325
  5. AZACITIDINE. [Concomitant]
     Active Substance: AZACITIDINE
     Indication: ACUTE MYELOID LEUKAEMIA
     Route: 058
     Dates: start: 20190325

REACTIONS (8)
  - Syncope [Unknown]
  - Blood creatinine abnormal [Unknown]
  - Differential white blood cell count abnormal [Unknown]
  - Blood calcium abnormal [Unknown]
  - Blood potassium abnormal [Unknown]
  - Cardiac arrest [Fatal]
  - Tumour lysis syndrome [Fatal]
  - White blood cell disorder [Unknown]

NARRATIVE: CASE EVENT DATE: 20190325
